FAERS Safety Report 9438992 (Version 1)
Quarter: 2013Q3

REPORT INFORMATION
  Report Type: Spontaneous
  Country: US (occurrence: US)
  Receive Date: 20130802
  Receipt Date: 20130802
  Transmission Date: 20140515
  Serious: No
  Sender: FDA-Public Use
  Company Number: US-009507513-1308USA000351

PATIENT
  Sex: Female

DRUGS (1)
  1. FORMOTEROL FUMARATE [Suspect]
     Indication: ASTHMA
     Dosage: 12MCG 1 STANDARD DOSE OF 60, ONCE TO TWICE DAILY ORAL INHALATION
     Route: 048
     Dates: start: 20130717

REACTIONS (4)
  - Drug dose omission [Unknown]
  - Product physical issue [Unknown]
  - Incorrect product storage [Unknown]
  - No adverse event [Unknown]
